FAERS Safety Report 9371482 (Version 1)
Quarter: 2013Q2

REPORT INFORMATION
  Report Type: Spontaneous
  Country: FR (occurrence: FR)
  Receive Date: 20130627
  Receipt Date: 20130627
  Transmission Date: 20140414
  Serious: Yes (Hospitalization, Other)
  Sender: FDA-Public Use
  Company Number: FR-ROCHE-1234326

PATIENT
  Sex: 0
  Weight: 90 kg

DRUGS (6)
  1. ROACTEMRA [Suspect]
     Indication: RHEUMATOID ARTHRITIS
     Route: 041
     Dates: end: 2010
  2. ROACTEMRA [Suspect]
     Route: 041
     Dates: start: 201104, end: 20120706
  3. CORTANCYL [Suspect]
     Indication: RHEUMATOID ARTHRITIS
     Route: 048
  4. VOLTARENE (FRANCE) [Concomitant]
     Route: 048
  5. AMLOR [Concomitant]
     Indication: HYPERTENSION
     Route: 048
  6. SKENAN LP [Concomitant]
     Route: 048

REACTIONS (5)
  - Rheumatoid nodule [Not Recovered/Not Resolved]
  - Infection [Not Recovered/Not Resolved]
  - Bronchopulmonary aspergillosis [Recovered/Resolved]
  - Osteitis [Unknown]
  - Wound secretion [Unknown]
